FAERS Safety Report 11124553 (Version 3)
Quarter: 2015Q2

REPORT INFORMATION
  Report Type: Spontaneous
  Country: UG (occurrence: None)
  Receive Date: 20150518
  Receipt Date: 20150608
  Transmission Date: 20150821
  Serious: Yes (Life-Threatening, Hospitalization)
  Sender: FDA-Public Use
  Company Number: UG2015GSK065465

PATIENT
  Age: 36 Year
  Sex: Male

DRUGS (5)
  1. LAMIVUDINE (LAMIVUDINE) UNKNOWN [Suspect]
     Active Substance: LAMIVUDINE
     Indication: HIV INFECTION
     Dates: start: 20141205, end: 20150421
  2. ISONIAZID + VITAMIN B6 (ISONIAZID + VITAMIN B6) [Concomitant]
  3. ZIDOVUDINE (ZIDOVUDINE) UNKNOWN) [Suspect]
     Active Substance: ZIDOVUDINE
     Indication: HIV INFECTION
     Dates: start: 20141205, end: 20150421
  4. EFAVIRENZ (EFAVIRENZ) [Concomitant]
     Active Substance: EFAVIRENZ
  5. COTRIMOXAZOLE [Concomitant]
     Active Substance: SULFAMETHOXAZOLE\TRIMETHOPRIM

REACTIONS (1)
  - Anaemia [None]

NARRATIVE: CASE EVENT DATE: 20150414
